FAERS Safety Report 24077454 (Version 1)
Quarter: 2024Q3

REPORT INFORMATION
  Report Type: Spontaneous
  Country: ES (occurrence: ES)
  Receive Date: 20240711
  Receipt Date: 20240711
  Transmission Date: 20241017
  Serious: Yes (Hospitalization, Other)
  Sender: CELLTRION
  Company Number: ES-CELLTRION INC.-2024ES016453

PATIENT

DRUGS (3)
  1. ADALIMUMAB [Suspect]
     Active Substance: ADALIMUMAB\ISOPROPYL ALCOHOL
     Indication: Crohn^s disease
     Dosage: UNK, DOSAGE1:UNIT= NOT AVAILABLE
     Route: 065
  2. INFLIXIMAB [Suspect]
     Active Substance: INFLIXIMAB
     Indication: Crohn^s disease
     Dosage: UNK
     Route: 065
  3. CYCLOSPORINE [Concomitant]
     Active Substance: CYCLOSPORINE
     Indication: Dermatitis atopic
     Dosage: UNK
     Route: 065

REACTIONS (4)
  - Gastrointestinal fistula [Unknown]
  - Diarrhoea haemorrhagic [Unknown]
  - Lymphopenia [Unknown]
  - Treatment failure [Unknown]

NARRATIVE: CASE EVENT DATE: 20000101
